FAERS Safety Report 8425852-X (Version None)
Quarter: 2012Q2

REPORT INFORMATION
  Report Type: 
  Country: None (occurrence: None)
  Receive Date: 20120611
  Receipt Date: 20120603
  Transmission Date: 20120825
  Serious: Yes (Other)
  Sender: FDA-Public Use
  Company Number: NL-ASTELLAS-2012US005261

PATIENT
  Sex: Female

DRUGS (2)
  1. TARCEVA [Suspect]
     Indication: NON-SMALL CELL LUNG CANCER METASTATIC
     Dosage: UNK
     Route: 048
     Dates: start: 20120215, end: 20120411
  2. TAXOTERE [Suspect]
     Indication: NON-SMALL CELL LUNG CANCER METASTATIC
     Dosage: UNK
     Route: 065
     Dates: start: 20120419

REACTIONS (10)
  - NEOPLASM MALIGNANT [None]
  - FATIGUE [None]
  - LEUKOPENIA [None]
  - ARTHRALGIA [None]
  - MYALGIA [None]
  - NEUTROPENIA [None]
  - COUGH [None]
  - MALAISE [None]
  - METASTASES TO SKIN [None]
  - SKIN DISORDER [None]
